FAERS Safety Report 17060217 (Version 1)
Quarter: 2019Q4

REPORT INFORMATION
  Report Type: Spontaneous
  Country: US (occurrence: US)
  Receive Date: 20191121
  Receipt Date: 20191121
  Transmission Date: 20200122
  Serious: No
  Sender: FDA-Public Use
  Company Number: US-LEXICON PHARMACEUTICALS, INC-19-1606-01037

PATIENT
  Age: 60 Year
  Sex: Female
  Weight: 48.58 kg

DRUGS (6)
  1. XERMELO [Suspect]
     Active Substance: TELOTRISTAT ETHYL
     Indication: CARCINOID SYNDROME
     Dates: start: 201910, end: 201910
  2. SANDOSTATIN [Concomitant]
     Active Substance: OCTREOTIDE ACETATE
     Indication: CARCINOID SYNDROME
  3. XERMELO [Suspect]
     Active Substance: TELOTRISTAT ETHYL
     Dates: start: 201910, end: 201911
  4. LOMOTIL [Concomitant]
     Active Substance: ATROPINE SULFATE\DIPHENOXYLATE HYDROCHLORIDE
  5. METAMUCIL [Concomitant]
     Active Substance: PLANTAGO SEED
  6. KAOPECTATE REGULAR STRENGTH CHERRY FLAVOR [Concomitant]
     Active Substance: BISMUTH SUBSALICYLATE

REACTIONS (5)
  - Diarrhoea [Recovered/Resolved]
  - Abdominal discomfort [Recovered/Resolved]
  - Off label use [Not Recovered/Not Resolved]
  - Flatulence [Recovered/Resolved]
  - Gastrointestinal sounds abnormal [Recovered/Resolved]

NARRATIVE: CASE EVENT DATE: 201910
